FAERS Safety Report 9701031 (Version 2)
Quarter: 2013Q4

REPORT INFORMATION
  Report Type: Report from Study
  Country: DE (occurrence: DE)
  Receive Date: 20131121
  Receipt Date: 20131121
  Transmission Date: 20140711
  Serious: Yes (Hospitalization)
  Sender: FDA-Public Use
  Company Number: DE-CELGENEUS-062-50794-13103348

PATIENT
  Age: 75 Year
  Sex: Female
  Weight: 65 kg

DRUGS (6)
  1. VIDAZA [Suspect]
     Indication: ACUTE MYELOID LEUKAEMIA
     Dosage: 120 MG ABSOLUTE
     Route: 058
     Dates: start: 20111031
  2. VIDAZA [Suspect]
     Dosage: 120 MG ABSOLUTE
     Route: 058
     Dates: end: 20121109
  3. INSULIN GLARGINE [Concomitant]
     Indication: DIABETES MELLITUS
     Dosage: E
     Route: 058
  4. INSULIN GLARGINE [Concomitant]
     Route: 065
     Dates: start: 20121201, end: 20121210
  5. METFORMIN [Concomitant]
     Indication: DIABETES MELLITUS
     Dosage: 4000 MILLIGRAM
     Route: 048
  6. VILDAGLIPTIN [Concomitant]
     Indication: DIABETES MELLITUS
     Dosage: 200 MILLIGRAM
     Route: 048

REACTIONS (1)
  - Diabetic hyperglycaemic coma [Recovered/Resolved]
